FAERS Safety Report 15596447 (Version 1)
Quarter: 2018Q4

REPORT INFORMATION
  Report Type: Spontaneous
  Country: RU (occurrence: RU)
  Receive Date: 20181107
  Receipt Date: 20181107
  Transmission Date: 20190205
  Serious: Yes (Death, Other)
  Sender: FDA-Public Use
  Company Number: RU-CORDEN PHARMA LATINA S.P.A.-RU-2018COR000128

PATIENT

DRUGS (4)
  1. CARBOPLATIN. [Suspect]
     Active Substance: CARBOPLATIN
     Indication: MEDULLOBLASTOMA
     Dosage: UNK, ON DAYS -4, -3 (CYCLE 1)
     Route: 065
  2. CARBOPLATIN. [Suspect]
     Active Substance: CARBOPLATIN
     Dosage: UNK, ON DAYS -4, -3, GIVEN 4 WEEKS LATER (CYCLE 2)
     Route: 065
  3. THIOTEPA. [Suspect]
     Active Substance: THIOTEPA
     Indication: MEDULLOBLASTOMA
     Dosage: UNK, ON DAYS -4, -3 (CYCLE 1)
     Route: 065
  4. THIOTEPA. [Suspect]
     Active Substance: THIOTEPA
     Dosage: UNK, ON DAYS -4, -3, 4 WEEKS LATER (CYCLE 2)
     Route: 065

REACTIONS (1)
  - Central nervous system necrosis [Fatal]
